FAERS Safety Report 9869175 (Version 3)
Quarter: 2014Q1

REPORT INFORMATION
  Report Type: Spontaneous
  Country: ES (occurrence: ES)
  Receive Date: 20140205
  Receipt Date: 20140310
  Transmission Date: 20141002
  Serious: Yes (Other)
  Sender: FDA-Public Use
  Company Number: ES-BRISTOL-MYERS SQUIBB COMPANY-20101408

PATIENT
  Age: 70 Year
  Sex: Female

DRUGS (2)
  1. HYDREA [Suspect]
     Indication: THROMBOCYTOSIS
     Route: 048
  2. HYDREA [Suspect]
     Indication: ANAEMIA
     Route: 048

REACTIONS (2)
  - Colon cancer [Unknown]
  - Off label use [Unknown]
